FAERS Safety Report 10128481 (Version 1)
Quarter: 2014Q2

REPORT INFORMATION
  Report Type: Spontaneous
  Country: US (occurrence: None)
  Receive Date: 20140425
  Receipt Date: 20140425
  Transmission Date: 20141212
  Serious: Yes (Life-Threatening, Hospitalization)
  Sender: FDA-Public Use
  Company Number: None

PATIENT
  Age: 11 Year
  Sex: Female
  Weight: 37.2 kg

DRUGS (1)
  1. METHOTREXATE [Suspect]
     Route: 058
     Dates: start: 20140422, end: 20140422

REACTIONS (5)
  - Hypotension [None]
  - Leukocytosis [None]
  - Pyrexia [None]
  - Product contamination [None]
  - Product quality issue [None]
